FAERS Safety Report 6749513-8 (Version None)
Quarter: 2010Q2

REPORT INFORMATION
  Report Type: 
  Country: None (occurrence: None)
  Receive Date: 20100527
  Receipt Date: 20100527
  Transmission Date: 20101027
  Serious: Yes (Other)
  Sender: FDA-Public Use
  Company Number: None

PATIENT
  Sex: Female
  Weight: 99.7913 kg

DRUGS (1)
  1. CLINDAMYCIN [Suspect]
     Indication: INFECTION
     Dosage: 3 TIMES A DAY
     Dates: start: 20100416, end: 20100426

REACTIONS (2)
  - ABDOMINAL PAIN [None]
  - DIARRHOEA [None]
